FAERS Safety Report 6696634-4 (Version None)
Quarter: 2010Q2

REPORT INFORMATION
  Report Type: 
  Country: None (occurrence: None)
  Receive Date: 20100426
  Receipt Date: 20100422
  Transmission Date: 20101027
  Serious: Yes (Hospitalization)
  Sender: FDA-Public Use
  Company Number: D0067248A

PATIENT
  Sex: Female
  Weight: 63 kg

DRUGS (4)
  1. ARIXTRA [Suspect]
     Dosage: 7.5ML PER DAY
     Route: 030
     Dates: start: 20100124
  2. LEVOTHYROXINE SODIUM [Concomitant]
     Indication: HYPOTHYROIDISM
     Dosage: 50MCG PER DAY
     Route: 048
  3. TRIAMTEREN COMP [Concomitant]
     Dosage: 75MG PER DAY
     Route: 048
  4. NOVAMINSULFON [Concomitant]
     Dosage: 500MG THREE TIMES PER DAY
     Route: 048
     Dates: start: 20090901

REACTIONS (5)
  - ABDOMINAL WALL HAEMATOMA [None]
  - C-REACTIVE PROTEIN INCREASED [None]
  - HAEMOGLOBIN DECREASED [None]
  - INCORRECT ROUTE OF DRUG ADMINISTRATION [None]
  - SURGERY [None]
